FAERS Safety Report 13578701 (Version 12)
Quarter: 2020Q4

REPORT INFORMATION
  Report Type: Report from Study
  Country: NL (occurrence: NL)
  Receive Date: 20170524
  Receipt Date: 20201025
  Transmission Date: 20210113
  Serious: Yes (Life-Threatening, Hospitalization, Other)
  Sender: FDA-Public Use
  Company Number: PHHO2017NL008038

PATIENT
  Age: 69 Year
  Sex: Male
  Weight: 82 kg

DRUGS (16)
  1. DIOVAN [Suspect]
     Active Substance: VALSARTAN
     Dosage: CODE NOT BROKEN
     Route: 048
     Dates: start: 20170511
  2. BLINDED NO TREATMENT RECEIVED [Suspect]
     Active Substance: INVESTIGATIONAL PRODUCT
     Dosage: CODE NOT BROKEN
     Route: 048
     Dates: start: 20170511
  3. PLACEBO [Suspect]
     Active Substance: UNSPECIFIED INGREDIENT
     Dosage: CODE NOT BROKEN
     Route: 048
     Dates: start: 20170511
  4. BLINDED NO TREATMENT RECEIVED [Suspect]
     Active Substance: INVESTIGATIONAL PRODUCT
     Indication: ACUTE MYOCARDIAL INFARCTION
     Dosage: CODE NOT BROKEN
     Route: 048
     Dates: start: 20170428
  5. PLACEBO [Suspect]
     Active Substance: UNSPECIFIED INGREDIENT
     Indication: ACUTE MYOCARDIAL INFARCTION
     Dosage: CODE NOT BROKEN
     Route: 048
     Dates: start: 20170428
  6. DIOVAN [Suspect]
     Active Substance: VALSARTAN
     Indication: ACUTE MYOCARDIAL INFARCTION
     Dosage: CODE NOT BROKEN
     Route: 048
     Dates: start: 20170428
  7. BLINDED LCZ696 [Suspect]
     Active Substance: SACUBITRIL\VALSARTAN
     Indication: ACUTE MYOCARDIAL INFARCTION
     Dosage: CODE NOT BROKEN
     Route: 048
     Dates: start: 20170428
  8. BLINDED RAMIPRIL [Suspect]
     Active Substance: RAMIPRIL
     Indication: ACUTE MYOCARDIAL INFARCTION
     Dosage: CODE NOT BROKEN
     Route: 048
     Dates: start: 20170428
  9. DIOVAN [Suspect]
     Active Substance: VALSARTAN
     Dosage: CODE NOT BROKEN
     Route: 048
     Dates: start: 20170511
  10. BLINDED LCZ696 [Suspect]
     Active Substance: SACUBITRIL\VALSARTAN
     Dosage: CODE NOT BROKEN
     Route: 048
     Dates: start: 20170511
  11. SPIRONOLACTON [Concomitant]
     Active Substance: SPIRONOLACTONE
     Indication: MYOCARDIAL INFARCTION
     Dosage: 25 MG
     Route: 065
     Dates: start: 20170425
  12. ACENOCOUMAROL [Concomitant]
     Active Substance: ACENOCOUMAROL
     Indication: ATRIAL FIBRILLATION
     Dosage: 1 MG, QD
     Route: 048
     Dates: start: 20100719, end: 20170927
  13. DIOVAN [Suspect]
     Active Substance: VALSARTAN
     Indication: ACUTE MYOCARDIAL INFARCTION
     Dosage: CODE NOT BROKEN
     Route: 048
     Dates: start: 20170428
  14. BLINDED RAMIPRIL [Suspect]
     Active Substance: RAMIPRIL
     Dosage: CODE NOT BROKEN
     Route: 048
     Dates: start: 20170511
  15. CLOPIDOGREL [Concomitant]
     Active Substance: CLOPIDOGREL BISULFATE
     Indication: PROPHYLAXIS
     Dosage: 75 MG, QD
     Route: 048
     Dates: start: 20170425, end: 20170927
  16. METOPROLOL. [Concomitant]
     Active Substance: METOPROLOL
     Indication: MYOCARDIAL INFARCTION
     Dosage: 100 MG
     Route: 065
     Dates: start: 20100719

REACTIONS (5)
  - Oesophageal carcinoma [Recovered/Resolved]
  - Melaena [Recovered/Resolved]
  - Haemorrhage [Recovered/Resolved]
  - Oesophageal obstruction [Not Recovered/Not Resolved]
  - Hypotension [Not Recovered/Not Resolved]

NARRATIVE: CASE EVENT DATE: 20170510
